FAERS Safety Report 10694580 (Version 2)
Quarter: 2015Q1

REPORT INFORMATION
  Report Type: Report from Study
  Country: JP (occurrence: JP)
  Receive Date: 20150107
  Receipt Date: 20150130
  Transmission Date: 20150721
  Serious: Yes (Other)
  Sender: FDA-Public Use
  Company Number: JP-TEVA-532608ISR

PATIENT

DRUGS (3)
  1. SODIUM THIOSULFATE [Suspect]
     Active Substance: SODIUM THIOSULFATE
     Indication: SQUAMOUS CELL CARCINOMA OF THE HYPOPHARYNX
     Dosage: 30-40 GR
     Route: 042
  2. PREDNISOLONE. [Concomitant]
     Active Substance: PREDNISOLONE
     Indication: PROPHYLAXIS
     Route: 050
  3. CISPLATIN. [Suspect]
     Active Substance: CISPLATIN
     Indication: SQUAMOUS CELL CARCINOMA OF THE HYPOPHARYNX
     Dosage: WEEKLY, FOR 3-6 WEEKS
     Route: 013

REACTIONS (2)
  - Monoplegia [Recovered/Resolved]
  - Cerebral infarction [Recovered/Resolved]
